FAERS Safety Report 9233480 (Version 1)
Quarter: 2013Q2

REPORT INFORMATION
  Report Type: Spontaneous
  Country: US (occurrence: US)
  Receive Date: 20130416
  Receipt Date: 20130416
  Transmission Date: 20140414
  Serious: Yes (Hospitalization)
  Sender: FDA-Public Use
  Company Number: US-SANOFI-AVENTIS-2013SA038425

PATIENT
  Sex: Female

DRUGS (6)
  1. LANTUS SOLOSTAR [Suspect]
     Indication: TYPE 2 DIABETES MELLITUS
     Dosage: FREQUENCY: NIGHTLY DOSE:50 UNIT(S)
     Route: 051
     Dates: start: 2008
  2. LANTUS SOLOSTAR [Suspect]
     Indication: TYPE 2 DIABETES MELLITUS
     Dosage: DOSE:10 UNIT(S)
     Route: 051
  3. SOLOSTAR [Suspect]
     Indication: TYPE 2 DIABETES MELLITUS
     Dates: start: 2008
  4. PAXIL [Concomitant]
  5. PREDNISONE [Concomitant]
  6. NOVOLOG [Concomitant]

REACTIONS (7)
  - Emphysema [Unknown]
  - Hiatus hernia [Unknown]
  - Feeling abnormal [Unknown]
  - Weight increased [Unknown]
  - Abdominal distension [Unknown]
  - Weight decreased [Unknown]
  - Blood glucose abnormal [Recovered/Resolved]
